FAERS Safety Report 7977869-7 (Version None)
Quarter: 2011Q4

REPORT INFORMATION
  Report Type: 
  Country: None (occurrence: None)
  Receive Date: 20111214
  Receipt Date: 20111202
  Transmission Date: 20120403
  Serious: Yes (Hospitalization)
  Sender: FDA-Public Use
  Company Number: JP-AMGEN-JPNSP2011044838

PATIENT
  Age: 68 Year
  Sex: Male

DRUGS (12)
  1. FALKEN [Concomitant]
     Indication: RHEUMATOID ARTHRITIS
     Dosage: 40 MG, 1X/DAY
     Route: 061
     Dates: start: 20060522
  2. FOLIC ACID [Concomitant]
     Indication: PROPHYLAXIS
     Dosage: 5 MG, 2X/WEEK
     Route: 048
     Dates: start: 20090812
  3. PYDOXAL [Concomitant]
     Indication: PROPHYLAXIS
     Dosage: 30 MG, 3X/DAY
     Dates: start: 20101026, end: 20110523
  4. ENBREL [Suspect]
     Indication: RHEUMATOID ARTHRITIS
     Dosage: 25 MG, 2 TIMES/WK
     Route: 058
     Dates: start: 20091201, end: 20101123
  5. ISONIAZID [Concomitant]
     Indication: ANTIBIOTIC PROPHYLAXIS
     Dosage: 100 MG, 3X/DAY
     Route: 048
     Dates: start: 20091118, end: 20110523
  6. ENBREL [Suspect]
     Dosage: 50 MG, QWK
     Route: 058
     Dates: start: 20101124, end: 20110426
  7. METHOTREXATE [Concomitant]
     Dosage: 2 MG, 4 TIMES/WK
     Route: 048
     Dates: start: 20090812
  8. TIROLBIT [Concomitant]
     Dosage: 1 MG, 2X/DAY
     Route: 048
     Dates: start: 20090409
  9. PYDOXAL [Concomitant]
     Dosage: 20 MG, 3X/DAY
     Route: 048
     Dates: start: 20091118, end: 20101025
  10. MUCOSTA [Concomitant]
     Dosage: 100 MG, 3X/DAY
     Route: 048
     Dates: start: 20101125, end: 20110523
  11. METHOTREXATE [Concomitant]
     Indication: RHEUMATOID ARTHRITIS
     Dosage: 2 MG, 3 TIMES/WK
     Route: 048
     Dates: start: 20060522, end: 20090811
  12. CELECOXIB [Concomitant]
     Indication: RHEUMATOID ARTHRITIS
     Dosage: 100 MG, 2X/DAY
     Route: 048
     Dates: start: 20101104

REACTIONS (2)
  - LARGE INTESTINE CARCINOMA [None]
  - ARTHRALGIA [None]
